FAERS Safety Report 17567607 (Version 2)
Quarter: 2020Q2

REPORT INFORMATION
  Report Type: Spontaneous
  Country: US (occurrence: US)
  Receive Date: 20200320
  Receipt Date: 20200401
  Transmission Date: 20200713
  Serious: Yes (Other)
  Sender: FDA-Public Use
  Company Number: US-ASTRAZENECA-2020SE39526

PATIENT
  Age: 68 Year
  Sex: Female
  Weight: 85.3 kg

DRUGS (3)
  1. ATORAVASTATIN [Concomitant]
     Active Substance: ATORVASTATIN
     Indication: BLOOD CHOLESTEROL ABNORMAL
  2. DIOVAN [Concomitant]
     Active Substance: VALSARTAN
     Indication: BLOOD PRESSURE ABNORMAL
  3. BYDUREON BCISE [Suspect]
     Active Substance: EXENATIDE
     Indication: TYPE 2 DIABETES MELLITUS
     Route: 058
     Dates: start: 20200116

REACTIONS (10)
  - Back pain [Unknown]
  - Device leakage [Unknown]
  - Blood glucose increased [Unknown]
  - Extra dose administered [Not Recovered/Not Resolved]
  - Intentional device misuse [Unknown]
  - Cataract [Unknown]
  - Product dose omission [Unknown]
  - Weight fluctuation [Unknown]
  - Wrong technique in device usage process [Unknown]
  - Visual impairment [Unknown]

NARRATIVE: CASE EVENT DATE: 2020
